FAERS Safety Report 17165485 (Version 3)
Quarter: 2020Q1

REPORT INFORMATION
  Report Type: Spontaneous
  Country: CH (occurrence: CH)
  Receive Date: 20191217
  Receipt Date: 20200102
  Transmission Date: 20200409
  Serious: Yes (Hospitalization)
  Sender: FDA-Public Use
  Company Number: NVSC2019CH068535

PATIENT
  Age: 17 Year
  Sex: Female
  Weight: 42.3 kg

DRUGS (10)
  1. GRAZOPREVIR. [Concomitant]
     Active Substance: GRAZOPREVIR
     Indication: HEPATITIS C
     Route: 065
  2. SOMATOTROPIN (HUMAN) [Concomitant]
     Active Substance: SOMATROPIN
     Indication: GROWTH RETARDATION
     Dosage: UNK
     Route: 065
     Dates: start: 201610
  3. DEFERASIROX. [Concomitant]
     Active Substance: DEFERASIROX
     Indication: PRODUCT USED FOR UNKNOWN INDICATION
     Dosage: 32.05 MG/KG, QD
     Route: 048
  4. CHOLECALCIFEROL [Concomitant]
     Active Substance: CHOLECALCIFEROL
     Indication: OSTEOPOROSIS
     Route: 065
  5. INSULIN ASPART [Concomitant]
     Active Substance: INSULIN ASPART
     Indication: PRODUCT USED FOR UNKNOWN INDICATION
     Route: 065
  6. DEFEROXAMINE [Suspect]
     Active Substance: DEFEROXAMINE MESYLATE
     Indication: THALASSAEMIA BETA
     Route: 065
  7. DEFERIPRONE [Concomitant]
     Active Substance: DEFERIPRONE
     Indication: PRODUCT USED FOR UNKNOWN INDICATION
     Dosage: 72.12 MG/KG, QD
     Route: 048
  8. INSULIN DETEMIR [Concomitant]
     Active Substance: INSULIN DETEMIR
     Indication: PRODUCT USED FOR UNKNOWN INDICATION
     Route: 065
  9. TESTOSTERONE ENANTATE [Concomitant]
     Active Substance: TESTOSTERONE
     Indication: DELAYED PUBERTY
     Dosage: UNK
     Route: 065
     Dates: start: 201712
  10. ELBASVIR. [Concomitant]
     Active Substance: ELBASVIR
     Indication: HEPATITIS C
     Dosage: UNK UKN
     Route: 065

REACTIONS (1)
  - Dyspnoea [Unknown]
